FAERS Safety Report 19418652 (Version 2)
Quarter: 2021Q2

REPORT INFORMATION
  Report Type: Spontaneous
  Country: US (occurrence: US)
  Receive Date: 20210615
  Receipt Date: 20210618
  Transmission Date: 20210717
  Serious: No
  Sender: FDA-Public Use
  Company Number: US-SA-2021SA194437

PATIENT
  Age: 20 Year
  Sex: Female

DRUGS (2)
  1. DUPIXENT [Suspect]
     Active Substance: DUPILUMAB
     Indication: DERMATITIS ATOPIC
     Dosage: UNK
     Route: 058
     Dates: start: 2021
  2. DUPIXENT [Suspect]
     Active Substance: DUPILUMAB
     Indication: PSORIASIS

REACTIONS (11)
  - Pigmentation disorder [Not Recovered/Not Resolved]
  - Skin discolouration [Unknown]
  - Injection site urticaria [Unknown]
  - Injection site swelling [Unknown]
  - Paraesthesia [Not Recovered/Not Resolved]
  - Rash [Unknown]
  - Contusion [Not Recovered/Not Resolved]
  - Blister [Not Recovered/Not Resolved]
  - Therapeutic response unexpected [Unknown]
  - Impaired healing [Unknown]
  - Product use in unapproved indication [Unknown]

NARRATIVE: CASE EVENT DATE: 2021
